FAERS Safety Report 8519948 (Version 4)
Quarter: 2012Q4

REPORT INFORMATION
  Report Type: 
  Country: US (occurrence: US)
  Receive Date: 20120418
  Receipt Date: 20121120
  Transmission Date: 20130627
  Serious: Yes (Death, Other)
  Sender: FDA-Public Use
  Company Number: US-CELGENEUS-163-21660-12041338

PATIENT
  Age: 76 Year
  Sex: Female

DRUGS (1)
  1. ABRAXANE [Suspect]
     Indication: BONE CANCER METASTATIC
     Dosage: 100 milligram/sq. meter
     Route: 065

REACTIONS (2)
  - Sepsis [Fatal]
  - Clostridium difficile colitis [Unknown]
